FAERS Safety Report 11695132 (Version 1)
Quarter: 2015Q4

REPORT INFORMATION
  Report Type: Other
  Country: JP (occurrence: JP)
  Receive Date: 20151103
  Receipt Date: 20151103
  Transmission Date: 20160304
  Serious: Yes (Other)
  Sender: FDA-Public Use
  Company Number: JP-CONCORDIA PHARMACEUTICALS INC.-CO-ZN-JP-2015-066

PATIENT
  Age: 66 Year
  Sex: Male

DRUGS (5)
  1. OXALIPLATIN. [Suspect]
     Active Substance: OXALIPLATIN
     Indication: COLON CANCER
  2. AVASTIN [Suspect]
     Active Substance: BEVACIZUMAB
     Indication: COLON CANCER
  3. FLUOROURACIL. [Suspect]
     Active Substance: FLUOROURACIL
     Indication: COLON CANCER
  4. ZANTAC [Suspect]
     Active Substance: RANITIDINE HYDROCHLORIDE
     Indication: PRODUCT USE ISSUE
  5. CALCIUM LEVOFOLINATE [Suspect]
     Active Substance: LEVOLEUCOVORIN CALCIUM
     Indication: COLON CANCER

REACTIONS (9)
  - Thrombocytopenia [Unknown]
  - Melaena [Unknown]
  - Haematuria [Unknown]
  - Platelet count decreased [Recovered/Resolved]
  - Mouth haemorrhage [Unknown]
  - Haemorrhage subcutaneous [Unknown]
  - Rash [Unknown]
  - Internal haemorrhage [Unknown]
  - Haemorrhagic diathesis [Recovered/Resolved]
